FAERS Safety Report 11073028 (Version 1)
Quarter: 2015Q2

REPORT INFORMATION
  Report Type: Spontaneous
  Country: DE (occurrence: DE)
  Receive Date: 20150428
  Receipt Date: 20150428
  Transmission Date: 20150821
  Serious: Yes (Hospitalization)
  Sender: FDA-Public Use
  Company Number: DE-TEVA-556393GER

PATIENT
  Age: 46 Year
  Sex: Male

DRUGS (6)
  1. FLUOXETINE [Suspect]
     Active Substance: FLUOXETINE\FLUOXETINE HYDROCHLORIDE
     Dosage: 60 MILLIGRAM DAILY;
     Dates: end: 20090305
  2. EDRONAX [Interacting]
     Active Substance: REBOXETINE MESYLATE
     Dosage: 4 DOSAGE FORMS DAILY;
     Dates: start: 20090224, end: 20090224
  3. EDRONAX [Interacting]
     Active Substance: REBOXETINE MESYLATE
     Dosage: 2 DOSAGE FORMS DAILY;
     Dates: start: 20090219, end: 20090223
  4. FLUOXETINE [Interacting]
     Active Substance: FLUOXETINE\FLUOXETINE HYDROCHLORIDE
     Dosage: 40 MILLIGRAM DAILY;
     Dates: start: 20090306, end: 20090324
  5. EUTHYROX [Concomitant]
     Active Substance: LEVOTHYROXINE SODIUM
  6. REMERGIL [Concomitant]
     Active Substance: MIRTAZAPINE
     Dosage: 7.5 MILLIGRAM DAILY;
     Dates: end: 20090305

REACTIONS (8)
  - Dysaesthesia [Recovered/Resolved]
  - Painful ejaculation [Recovered/Resolved]
  - Ejaculation disorder [Recovered/Resolved]
  - Painful erection [Recovered/Resolved]
  - Drug interaction [Unknown]
  - Urge incontinence [Recovered/Resolved]
  - Urinary retention [Recovered/Resolved]
  - Blood creatine phosphokinase increased [Recovered/Resolved]

NARRATIVE: CASE EVENT DATE: 20090222
